FAERS Safety Report 7647569-1 (Version None)
Quarter: 2011Q3

REPORT INFORMATION
  Report Type: 
  Country: None (occurrence: None)
  Receive Date: 20110801
  Receipt Date: 20110727
  Transmission Date: 20111222
  Serious: Yes (Life-Threatening, Hospitalization, Other)
  Sender: FDA-Public Use
  Company Number: AU-ASTRAZENECA-2011SE45382

PATIENT
  Age: 0 Day
  Sex: Male
  Weight: 4.1 kg

DRUGS (8)
  1. FLUVOXAMINE MALEATE [Suspect]
     Indication: ANTIDEPRESSANT THERAPY
     Route: 064
  2. LAMOTRIGINE [Suspect]
     Indication: ANTICONVULSANT DRUG LEVEL
     Route: 064
  3. LORAZEPAM [Suspect]
     Indication: ANXIETY
     Route: 064
  4. IMOVANE [Concomitant]
     Indication: INSOMNIA
     Route: 064
  5. ELEVIT [Concomitant]
     Indication: PREGNANCY
     Route: 064
  6. SEROQUEL XR [Suspect]
     Indication: PSYCHOTIC DISORDER
     Route: 064
  7. LAMOTRIGINE [Suspect]
     Indication: AFFECTIVE DISORDER
     Route: 064
  8. FOLIC ACID [Concomitant]
     Indication: PROPHYLAXIS OF NEURAL TUBE DEFECT
     Route: 064

REACTIONS (2)
  - DRUG WITHDRAWAL SYNDROME [None]
  - RESPIRATORY DISTRESS [None]
